FAERS Safety Report 16060125 (Version 1)
Quarter: 2019Q1

REPORT INFORMATION
  Report Type: Spontaneous
  Country: BR (occurrence: BR)
  Receive Date: 20190312
  Receipt Date: 20190312
  Transmission Date: 20190418
  Serious: Yes (Other)
  Sender: FDA-Public Use
  Company Number: BR-BRISTOL-MYERS SQUIBB COMPANY-BMS-2019-023200

PATIENT
  Sex: Male

DRUGS (1)
  1. GLIFAGE XR [Suspect]
     Active Substance: METFORMIN HYDROCHLORIDE
     Indication: DIABETES MELLITUS
     Dosage: 1 DOSAGE FORM
     Route: 065
     Dates: start: 2015

REACTIONS (7)
  - Decreased appetite [Unknown]
  - Intentional product use issue [Unknown]
  - Syncope [Unknown]
  - Pallor [Unknown]
  - Weight decreased [Unknown]
  - Breath odour [Unknown]
  - Nausea [Unknown]

NARRATIVE: CASE EVENT DATE: 2018
